FAERS Safety Report 14242978 (Version 1)
Quarter: 2017Q4

REPORT INFORMATION
  Report Type: Report from Study
  Country: US (occurrence: US)
  Receive Date: 20171201
  Receipt Date: 20171201
  Transmission Date: 20180321
  Serious: Yes (Hospitalization)
  Sender: FDA-Public Use
  Company Number: US-JNJFOC-20171128890

PATIENT
  Sex: Female
  Weight: 3.18 kg

DRUGS (11)
  1. CLOZARIL [Suspect]
     Active Substance: CLOZAPINE
     Indication: BIPOLAR DISORDER
     Dosage: FREQUENCY: 3 WEEKS TO 16 WEEKS
     Route: 064
  2. RISPERDAL [Suspect]
     Active Substance: RISPERIDONE
     Indication: BIPOLAR DISORDER
     Dosage: FREQUENCY: LAST MENSTRUAL PERIOD (LMP) TO 4 WEEKS
     Route: 064
  3. RISPERDAL [Suspect]
     Active Substance: RISPERIDONE
     Indication: BIPOLAR DISORDER
     Dosage: FREQUENCY: 5 WEEKS TO 16 WEEKS
     Route: 064
  4. LEVOTHYROXINE. [Suspect]
     Active Substance: LEVOTHYROXINE
     Indication: HYPOTHYROIDISM
     Dosage: FREQUENCY: LMP TO UNKNOWN
     Route: 064
  5. ZOLOFT [Suspect]
     Active Substance: SERTRALINE HYDROCHLORIDE
     Indication: DEPRESSION
     Dosage: FREQUENCY: FROM 13 WEEKS TO DELIVERY
     Route: 064
  6. CLOZARIL [Suspect]
     Active Substance: CLOZAPINE
     Indication: BIPOLAR DISORDER
     Dosage: FREQUENCY: LMP TO 2 WEEKS
     Route: 064
  7. KLONOPIN [Suspect]
     Active Substance: CLONAZEPAM
     Indication: ANXIETY
     Dosage: FREQUENCY: LMP TO 27 WEEKS
     Route: 064
  8. CLOZARIL [Suspect]
     Active Substance: CLOZAPINE
     Indication: BIPOLAR DISORDER
     Dosage: 17 WEEKS TO DELIVERY
     Route: 064
  9. ABILIFY [Suspect]
     Active Substance: ARIPIPRAZOLE
     Indication: BIPOLAR DISORDER
     Dosage: FREQUENCY: LMP TO DELIVERY
     Route: 064
  10. ZOLOFT [Suspect]
     Active Substance: SERTRALINE HYDROCHLORIDE
     Indication: ANXIETY
     Dosage: FREQUENCY: FROM 13 WEEKS TO DELIVERY
     Route: 064
  11. LAMICTAL [Suspect]
     Active Substance: LAMOTRIGINE
     Indication: BIPOLAR DISORDER
     Dosage: FREQUENCY: LMP TO DELIVERY
     Route: 064

REACTIONS (3)
  - Withdrawal syndrome [Unknown]
  - Heart rate decreased [Unknown]
  - Foetal exposure during pregnancy [Unknown]

NARRATIVE: CASE EVENT DATE: 2015
